FAERS Safety Report 4492062-0 (Version None)
Quarter: 2004Q4

REPORT INFORMATION
  Report Type: 
  Country: None (occurrence: None)
  Receive Date: 20041101
  Receipt Date: 20041020
  Transmission Date: 20050328
  Serious: Yes (Other)
  Sender: FDA-Public Use
  Company Number: HQWYE906320OCT04

PATIENT
  Age: 70 Year
  Sex: Male

DRUGS (5)
  1. PANTOPRAZOLE SODIUM [Suspect]
     Indication: OESOPHAGITIS
     Dosage: 20 MG 1X PER 1 DAY, ORAL
     Route: 048
     Dates: end: 20030401
  2. EMCONCOR (BISOPROLOL FUMARATE) [Concomitant]
  3. HYPERLIPEN (CIPROFIBRATE) [Concomitant]
  4. CARDEGIC (ACETYLSALICYLATE LYSINE) [Concomitant]
  5. BROMAZEPAM(BROMAZEPAM) [Concomitant]

REACTIONS (1)
  - MEMORY IMPAIRMENT [None]
